FAERS Safety Report 9270354 (Version 2)
Quarter: 2013Q2

REPORT INFORMATION
  Report Type: Spontaneous
  Country: RS (occurrence: RS)
  Receive Date: 20130503
  Receipt Date: 20130613
  Transmission Date: 20140414
  Serious: Yes (Life-Threatening, Hospitalization, Other)
  Sender: FDA-Public Use
  Company Number: RS-TEVA-401098ISR

PATIENT
  Age: 66 Year
  Sex: Female
  Weight: 57 kg

DRUGS (5)
  1. PACLITAXEL [Suspect]
     Indication: BREAST CANCER
     Route: 042
  2. RANISAN [Concomitant]
     Indication: PREMEDICATION
     Dosage: 1 AMPULE
     Route: 042
  3. KLOMETOL [Concomitant]
     Indication: PREMEDICATION
     Dosage: 1 AMPULE
     Route: 042
  4. SYNOPEN [Concomitant]
     Indication: PREMEDICATION
     Dosage: 1 AMPULE
     Route: 042
  5. DEXASON [Concomitant]
     Indication: PREMEDICATION
     Dosage: 2 AMPULES
     Route: 042

REACTIONS (9)
  - Erythema [Recovered/Resolved]
  - Choking [Recovered/Resolved]
  - Chest discomfort [Recovered/Resolved]
  - Chest discomfort [Recovered/Resolved]
  - Erythema [Recovered/Resolved]
  - Chest pain [Recovered/Resolved]
  - Headache [Recovered/Resolved]
  - Urinary incontinence [Recovered/Resolved]
  - Diarrhoea [Recovered/Resolved]
